FAERS Safety Report 20771742 (Version 7)
Quarter: 2023Q1

REPORT INFORMATION
  Report Type: Report from Study
  Country: US (occurrence: US)
  Receive Date: 20220430
  Receipt Date: 20230201
  Transmission Date: 20230418
  Serious: Yes (Other)
  Sender: FDA-Public Use
  Company Number: US-NOVARTISPH-NVSC2022US096861

PATIENT
  Age: 61 Year
  Sex: Male

DRUGS (5)
  1. ENTRESTO [Suspect]
     Active Substance: SACUBITRIL\VALSARTAN
     Indication: Product used for unknown indication
     Dosage: 0.5 DOSAGE FORM, BID (24/26 MG)
     Route: 065
     Dates: start: 202104
  2. WARFARIN [Suspect]
     Active Substance: WARFARIN
     Indication: Product used for unknown indication
     Dosage: 6 MG
     Route: 065
     Dates: start: 2006
  3. PREDNISONE [Suspect]
     Active Substance: PREDNISONE
     Indication: Rheumatoid arthritis
     Dosage: 5 MG, PRN (AS NEEDED)
     Route: 065
     Dates: start: 2015
  4. ASPIRIN [Concomitant]
     Active Substance: ASPIRIN
     Indication: Product used for unknown indication
     Dosage: UNK
     Route: 065
     Dates: start: 2004
  5. ASPIRIN [Concomitant]
     Active Substance: ASPIRIN
     Dosage: UNK (DOSE INCREASED)
     Route: 065

REACTIONS (14)
  - Myocardial infarction [Recovering/Resolving]
  - Cerebrovascular accident [Recovering/Resolving]
  - Haemorrhage [Unknown]
  - Visual impairment [Not Recovered/Not Resolved]
  - Dyspnoea [Recovering/Resolving]
  - Weight increased [Recovered/Resolved]
  - Condition aggravated [Unknown]
  - Wheezing [Unknown]
  - Contusion [Not Recovered/Not Resolved]
  - Joint stiffness [Not Recovered/Not Resolved]
  - Blood cholesterol increased [Unknown]
  - Malaise [Unknown]
  - Wrong technique in product usage process [Unknown]
  - Prescribed underdose [Unknown]

NARRATIVE: CASE EVENT DATE: 20210401
